FAERS Safety Report 22522511 (Version 1)
Quarter: 2023Q2

REPORT INFORMATION
  Report Type: Spontaneous
  Country: GB (occurrence: GB)
  Receive Date: 20230605
  Receipt Date: 20230605
  Transmission Date: 20230721
  Serious: Yes (Death)
  Sender: FDA-Public Use
  Company Number: GB-Actavis-083025

PATIENT
  Age: 74 Year
  Sex: Male

DRUGS (1)
  1. PIRFENIDONE [Suspect]
     Active Substance: PIRFENIDONE
     Indication: Product used for unknown indication
     Dosage: 267 MG, 9QD (FREQUENCY: 9 PER DAY)
     Route: 048
     Dates: start: 202209

REACTIONS (2)
  - Death [Fatal]
  - Feeding disorder [Unknown]
